FAERS Safety Report 7878920-5 (Version None)
Quarter: 2011Q4

REPORT INFORMATION
  Report Type: 
  Country: None (occurrence: None)
  Receive Date: 20111025
  Receipt Date: 20110428
  Transmission Date: 20120403
  Serious: Yes (Other)
  Sender: FDA-Public Use
  Company Number: 2011-02555

PATIENT
  Age: 30 Year
  Sex: Female

DRUGS (1)
  1. TUBERSOL [Suspect]
     Indication: TUBERCULIN TEST
     Dosage: I.D.
     Route: 023
     Dates: start: 20110426, end: 20110426

REACTIONS (3)
  - FEELING COLD [None]
  - HYPOAESTHESIA [None]
  - PARAESTHESIA [None]
